FAERS Safety Report 8621683-6 (Version None)
Quarter: 2012Q3

REPORT INFORMATION
  Report Type: 
  Country: None (occurrence: None)
  Receive Date: 20120825
  Receipt Date: 20120802
  Transmission Date: 20120928
  Serious: No
  Sender: FDA-Public Use
  Company Number: US-009507513-1208USA002507

PATIENT

DRUGS (3)
  1. PEG-INTRON [Suspect]
     Indication: HEPATITIS C
     Dosage: UNK
     Dates: start: 20110910, end: 20120324
  2. REBETOL [Suspect]
     Indication: HEPATITIS C
     Dosage: UNK
     Dates: start: 20110910, end: 20120330
  3. VICTRELIS [Suspect]
     Indication: HEPATITIS C
     Dosage: UNK
     Dates: start: 20111019, end: 20120330

REACTIONS (5)
  - MALAISE [None]
  - WEIGHT INCREASED [None]
  - HEPATITIS C [None]
  - DYSGEUSIA [None]
  - DRY MOUTH [None]
